FAERS Safety Report 4620886-5 (Version None)
Quarter: 2005Q1

REPORT INFORMATION
  Report Type: 
  Country: None (occurrence: None)
  Receive Date: 20050325
  Receipt Date: 20050317
  Transmission Date: 20050727
  Serious: No
  Sender: FDA-Public Use
  Company Number: 2005-126541-NL

PATIENT
  Age: 67 Year
  Sex: Female

DRUGS (22)
  1. PANCURONIUM [Suspect]
     Indication: INDUCTION AND MAINTENANCE OF ANAESTHESIA
     Dosage: 10 MG ONCE, INTRAVENOUS BOLUS
     Route: 040
  2. MIDAZOLAM HCL [Concomitant]
  3. SUFFENTANIL [Concomitant]
  4. CRYSTALLOID SOLUTION [Concomitant]
  5. PENTASTARCH [Concomitant]
  6. RED BLOOD CELLS [Concomitant]
  7. NOREPINEPHRINEQ [Concomitant]
  8. MILRINONE [Concomitant]
  9. HEPARIN [Concomitant]
  10. PROTAMINE [Concomitant]
  11. MAGNESIUM SULPHATE PASTE [Concomitant]
  12. VANCOMYCIN [Concomitant]
  13. FUROSEMIDE [Concomitant]
  14. MANNITOL [Concomitant]
  15. REMIFENTANIL [Concomitant]
  16. MORPHINE [Concomitant]
  17. AMPICILLIN [Concomitant]
  18. GENTAMICIN [Concomitant]
  19. DIGOXIN [Concomitant]
  20. RAMIPRIL [Concomitant]
  21. FLURAZEPAM [Concomitant]
  22. POTASSIUM CHLORIDE [Concomitant]

REACTIONS (5)
  - ANAESTHETIC COMPLICATION NEUROLOGICAL [None]
  - AREFLEXIA [None]
  - COMA [None]
  - HAEMORRHAGE [None]
  - MUSCLE TWITCHING [None]
